FAERS Safety Report 5513434-9 (Version None)
Quarter: 2007Q4

REPORT INFORMATION
  Report Type: 
  Country: None (occurrence: None)
  Receive Date: 20071112
  Receipt Date: 20071031
  Transmission Date: 20080405
  Serious: Yes (Other)
  Sender: FDA-Public Use
  Company Number: FR-PFIZER INC-2007087554

PATIENT
  Sex: Male

DRUGS (5)
  1. LYRICA [Suspect]
     Indication: CEREBROVASCULAR ACCIDENT
     Route: 048
     Dates: start: 20060901, end: 20061009
  2. VALPROIC ACID [Concomitant]
     Route: 048
  3. BISOPROLOL FUMARATE [Concomitant]
     Route: 048
  4. ROSUVASTATIN [Concomitant]
     Route: 048
  5. ACETYLSALICYLATE LYSINE [Concomitant]
     Route: 048

REACTIONS (6)
  - ANURIA [None]
  - ASTHENIA [None]
  - HEPATITIS CHOLESTATIC [None]
  - JAUNDICE [None]
  - NAUSEA [None]
  - WEIGHT DECREASED [None]
